FAERS Safety Report 8510093 (Version 4)
Quarter: 2012Q4

REPORT INFORMATION
  Report Type: 
  Country: FR (occurrence: FR)
  Receive Date: 20120413
  Receipt Date: 20120918
  Transmission Date: 20130627
  Serious: Yes (Life-Threatening, Hospitalization)
  Sender: FDA-Public Use
  Company Number: FR-BRISTOL-MYERS SQUIBB COMPANY-16503799

PATIENT
  Age: 51 Year
  Sex: Female
  Weight: 68 kg

DRUGS (1)
  1. SPRYCEL [Suspect]
     Indication: CHRONIC MYELOID LEUKAEMIA
     Dosage: for more than 5 years;1Dec06-4Mar12
     Route: 048
     Dates: start: 20061201

REACTIONS (3)
  - Pulmonary arterial hypertension [Recovered/Resolved]
  - Pleural effusion [Not Recovered/Not Resolved]
  - Polycythaemia [Unknown]
